FAERS Safety Report 13673552 (Version 1)
Quarter: 2017Q2

REPORT INFORMATION
  Report Type: Spontaneous
  Country: US (occurrence: US)
  Receive Date: 20170621
  Receipt Date: 20170621
  Transmission Date: 20170830
  Serious: No
  Sender: FDA-Public Use
  Company Number: US-TEVA-733577ACC

PATIENT
  Age: 88 Year
  Sex: Female

DRUGS (3)
  1. HYDROCORTISONE. [Suspect]
     Active Substance: HYDROCORTISONE
     Indication: SKIN IRRITATION
  2. HYDROCORTISONE. [Suspect]
     Active Substance: HYDROCORTISONE
     Indication: ERYTHEMA
     Dates: start: 20170120, end: 20170122
  3. FLUOCINONIDE. [Suspect]
     Active Substance: FLUOCINONIDE
     Indication: ERYTHEMA

REACTIONS (2)
  - Drug ineffective [Unknown]
  - Drug effect delayed [Unknown]

NARRATIVE: CASE EVENT DATE: 2017
